FAERS Safety Report 23193243 (Version 1)
Quarter: 2023Q4

REPORT INFORMATION
  Report Type: Spontaneous
  Country: FR (occurrence: FR)
  Receive Date: 20231116
  Receipt Date: 20231116
  Transmission Date: 20240110
  Serious: Yes (Life-Threatening, Other)
  Sender: FDA-Public Use
  Company Number: None

PATIENT
  Age: 29 Year
  Sex: Female
  Weight: 85 kg

DRUGS (9)
  1. PROPOFOL [Suspect]
     Active Substance: PROPOFOL
     Indication: Induction and maintenance of anaesthesia
     Dosage: 300 MILLIGRAM, 1 TOTAL
     Route: 042
     Dates: start: 20231005, end: 20231005
  2. DEXAMETHASONE [Suspect]
     Active Substance: DEXAMETHASONE
     Indication: Gait disturbance
     Dosage: 8 MILLIGRAM, 1 TOTAL
     Route: 042
     Dates: start: 20231005, end: 20231005
  3. SUFENTANIL [Suspect]
     Active Substance: SUFENTANIL
     Indication: Anaesthesia
     Dosage: 20 MICROGRAM, 1 TOTAL
     Route: 042
     Dates: start: 20231005, end: 20231005
  4. MIDAZOLAM [Suspect]
     Active Substance: MIDAZOLAM
     Indication: Anaesthesia
     Dosage: 2 MILLIGRAM
     Route: 042
     Dates: start: 20231005, end: 20231005
  5. EPHEDRINE HYDROCHLORIDE [Suspect]
     Active Substance: EPHEDRINE HYDROCHLORIDE
     Indication: Hypotension
     Dosage: 9 MILLIGRAM 1 TOTAL
     Route: 042
     Dates: start: 20231005, end: 20231005
  6. AMOXICILLIN [Suspect]
     Active Substance: AMOXICILLIN
     Indication: Antibiotic prophylaxis
     Dosage: 1 GRAM, 1 TOTAL
     Route: 042
     Dates: start: 20231005, end: 20231005
  7. SUCCINYLCHOLINE [Suspect]
     Active Substance: SUCCINYLCHOLINE
     Indication: Anaesthesia
     Dosage: 90 MILLIGRAM, 1 TOTAL
     Route: 042
     Dates: start: 20231005, end: 20231005
  8. CLAVULANIC ACID [Suspect]
     Active Substance: CLAVULANIC ACID
     Indication: Antibiotic prophylaxis
     Dosage: 200 MILLIGRAM, 1 TOTAL
     Route: 042
     Dates: start: 20231005, end: 20231005
  9. ATRACURIUM [Suspect]
     Active Substance: ATRACURIUM
     Indication: Anaesthesia
     Dosage: 40 MILLIGRAM, 1 TOTAL
     Route: 042
     Dates: start: 20231005, end: 20231005

REACTIONS (1)
  - Anaphylactic reaction [Recovered/Resolved]

NARRATIVE: CASE EVENT DATE: 20231005
